FAERS Safety Report 8619403 (Version 2)
Quarter: 2012Q4

REPORT INFORMATION
  Report Type: 
  Country: US (occurrence: US)
  Receive Date: 20120618
  Receipt Date: 20120907
  Transmission Date: 20130627
  Serious: Yes (Hospitalization, Other)
  Sender: FDA-Public Use
  Company Number: US-BAYER-2012-058171

PATIENT
  Age: 28 Year
  Sex: Female
  Weight: 114 kg

DRUGS (10)
  1. OCELLA [Suspect]
     Indication: CONTRACEPTION
     Dosage: UNK
     Dates: start: 20090404, end: 20090518
  2. YASMIN [Suspect]
  3. YAZ [Suspect]
  4. ZOLOFT [Concomitant]
     Indication: POSTPARTUM DEPRESSION
     Dosage: 100 mg, QD
     Route: 048
  5. CLARITHROMYCIN [Concomitant]
     Dosage: 500 mg, UNK
     Route: 048
  6. ZOLPIDEM TARTRATE [Concomitant]
     Indication: INSOMNIA
     Dosage: 5 mg, UNK
     Route: 048
  7. MVI [Concomitant]
  8. ATIVAN [Concomitant]
  9. ZOFRAN [Concomitant]
  10. MORPHINE [Concomitant]

REACTIONS (9)
  - Cholelithiasis [None]
  - Pulmonary embolism [None]
  - Thrombosis [None]
  - Thrombophlebitis superficial [None]
  - Chest pain [None]
  - Dyspnoea [None]
  - Chest discomfort [None]
  - Anxiety [None]
  - Emotional distress [None]
